FAERS Safety Report 6080627-4 (Version None)
Quarter: 2009Q1

REPORT INFORMATION
  Report Type: 
  Country: None (occurrence: None)
  Receive Date: 20090121
  Receipt Date: 20080716
  Transmission Date: 20090719
  Serious: Yes (Other)
  Sender: FDA-Public Use
  Company Number: US-WYE-H05172708

PATIENT
  Age: 46 Year
  Sex: Female

DRUGS (3)
  1. PREMPRO [Suspect]
     Indication: HORMONE REPLACEMENT THERAPY
     Dosage: NOT SPECIFIED
     Dates: start: 20050302, end: 20050510
  2. ACTIVELLA [Suspect]
     Dosage: NOT SPECIFIED
     Dates: start: 20011119, end: 20050428
  3. PREMARIN [Suspect]
     Indication: HORMONE REPLACEMENT THERAPY
     Dosage: NOT SPECIFIED
     Dates: start: 20010608, end: 20010708

REACTIONS (1)
  - BREAST CANCER [None]
